FAERS Safety Report 17534457 (Version 1)
Quarter: 2020Q1

REPORT INFORMATION
  Report Type: Spontaneous
  Country: US (occurrence: US)
  Receive Date: 20200312
  Receipt Date: 20200312
  Transmission Date: 20200409
  Serious: No
  Sender: FDA-Public Use
  Company Number: US-TEVA-2020-US-1199806

PATIENT
  Age: 53 Year
  Sex: Female

DRUGS (1)
  1. TEMAZEPAM. [Suspect]
     Active Substance: TEMAZEPAM
     Dosage: UNKNOWN DOSE
     Route: 065

REACTIONS (3)
  - Paraesthesia [Unknown]
  - Ageusia [Unknown]
  - Weight decreased [Unknown]
